FAERS Safety Report 9941787 (Version 2)
Quarter: 2014Q1

REPORT INFORMATION
  Report Type: Report from Study
  Country: US (occurrence: US)
  Receive Date: 20140303
  Receipt Date: 20140303
  Transmission Date: 20141002
  Serious: No
  Sender: FDA-Public Use
  Company Number: US-ABBVIE-12P-163-1027905-00

PATIENT
  Age: 48 Year
  Sex: Female

DRUGS (9)
  1. HUMIRA [Suspect]
     Indication: CROHN^S DISEASE
     Route: 058
     Dates: start: 20121210, end: 20121210
  2. HUMIRA [Suspect]
     Route: 058
     Dates: end: 20121224
  3. HUMIRA [Suspect]
     Route: 058
     Dates: start: 20130112
  4. BENTYL [Concomitant]
     Indication: CROHN^S DISEASE
  5. BENTYL [Concomitant]
     Indication: GASTROOESOPHAGEAL REFLUX DISEASE
  6. METOCLOPRAMIDE [Concomitant]
     Indication: CROHN^S DISEASE
  7. METOCLOPRAMIDE [Concomitant]
     Indication: GASTROOESOPHAGEAL REFLUX DISEASE
  8. LIBRAX [Concomitant]
     Indication: CROHN^S DISEASE
     Dosage: 5/2.5MG EVERY BEDTIME
  9. OMEPRAZOLE [Concomitant]
     Indication: DYSPEPSIA

REACTIONS (6)
  - Fatigue [Not Recovered/Not Resolved]
  - Depressed mood [Not Recovered/Not Resolved]
  - Oropharyngeal pain [Not Recovered/Not Resolved]
  - Swelling face [Recovered/Resolved]
  - Sinusitis [Recovering/Resolving]
  - Condition aggravated [Unknown]
